FAERS Safety Report 6627209-0 (Version None)
Quarter: 2010Q1

REPORT INFORMATION
  Report Type: 
  Country: None (occurrence: None)
  Receive Date: 20100308
  Receipt Date: 20100109
  Transmission Date: 20100710
  Serious: Yes (Other)
  Sender: FDA-Public Use
  Company Number: RIUS-2010-001

PATIENT
  Age: 67 Year
  Sex: Female

DRUGS (12)
  1. RICOLA LEMON MINT COUGH/THROAT DROPS [Suspect]
     Indication: COUGH
     Dosage: AS NEEDED 060
     Dates: start: 20091217
  2. ASPIRIN [Concomitant]
  3. SERTRALINE HCL [Concomitant]
  4. ZOCOR [Concomitant]
  5. LEVOTHROID [Concomitant]
  6. CALTRATE [Concomitant]
  7. FLAXSEED OIL [Concomitant]
  8. GLUCOSAMINE/CHONDROITIN SULFATE [Concomitant]
  9. PEPCID AC [Concomitant]
  10. BENADRYL [Concomitant]
  11. ZYRTEC [Concomitant]
  12. EPIPEN [Concomitant]

REACTIONS (4)
  - ANGIOEDEMA [None]
  - AREFLEXIA [None]
  - OROPHARYNGEAL DISCOMFORT [None]
  - SCAR [None]
